FAERS Safety Report 20216546 (Version 2)
Quarter: 2022Q1

REPORT INFORMATION
  Report Type: Report from Study
  Country: CR (occurrence: CR)
  Receive Date: 20211222
  Receipt Date: 20220205
  Transmission Date: 20220424
  Serious: Yes (Hospitalization, Other)
  Sender: FDA-Public Use
  Company Number: CR-NOVARTISPH-NVSC2021CR290336

PATIENT
  Age: 86 Year
  Sex: Female

DRUGS (1)
  1. DIOVAN [Suspect]
     Active Substance: VALSARTAN
     Indication: Product used for unknown indication
     Dosage: 160 MG (START DATE- APPROXIMATELY IN 2012, STOP DATE- APPROXIMATELY IN 2019)
     Route: 065
     Dates: start: 2012, end: 2019

REACTIONS (4)
  - Cardiac disorder [Unknown]
  - Blood pressure increased [Unknown]
  - Lung disorder [Unknown]
  - Drug resistance [Unknown]
